FAERS Safety Report 13386959 (Version 6)
Quarter: 2017Q3

REPORT INFORMATION
  Report Type: Spontaneous
  Country: US (occurrence: US)
  Receive Date: 20170330
  Receipt Date: 20170811
  Transmission Date: 20171127
  Serious: Yes (Congenital Anomaly, Other)
  Sender: FDA-Public Use
  Company Number: PHEH2017US008895

PATIENT
  Sex: Female

DRUGS (3)
  1. ZOFRAN [Suspect]
     Active Substance: ONDANSETRON HYDROCHLORIDE
     Indication: FOETAL EXPOSURE DURING PREGNANCY
     Dosage: MOTHER^S DOSE: 4 MG, PRN
     Route: 064
  2. ZOFRAN ODT [Suspect]
     Active Substance: ONDANSETRON HYDROCHLORIDE
     Indication: FOETAL EXPOSURE DURING PREGNANCY
     Route: 064
  3. ONDANSETRONE DR. REDDY^S [Suspect]
     Active Substance: ONDANSETRON HYDROCHLORIDE
     Indication: FOETAL EXPOSURE DURING PREGNANCY
     Dosage: MOTHER^S  DOSE: 4 MG, UNK
     Route: 064

REACTIONS (42)
  - Oppositional defiant disorder [Unknown]
  - Contusion [Unknown]
  - Abdominal pain [Unknown]
  - Gastrooesophageal reflux disease [Unknown]
  - Aortic stenosis [Unknown]
  - Left ventricular hypertrophy [Unknown]
  - Arrhythmia neonatal [Unknown]
  - Foetal exposure during pregnancy [Unknown]
  - Injury [Unknown]
  - Sleep disorder [Unknown]
  - Left-to-right cardiac shunt [Unknown]
  - Left ventricle outflow tract obstruction [Unknown]
  - Attention deficit/hyperactivity disorder [Unknown]
  - Atrial septal defect [Unknown]
  - Affective disorder [Unknown]
  - Sleep apnoea syndrome [Unknown]
  - Reactive airways dysfunction syndrome [Unknown]
  - Pharyngitis [Unknown]
  - Patent ductus arteriosus [Unknown]
  - Low birth weight baby [Unknown]
  - Hallucination [Unknown]
  - Gastritis [Unknown]
  - Insomnia [Unknown]
  - Bicuspid aortic valve [Unknown]
  - Congenital aortic dilatation [Unknown]
  - Diarrhoea neonatal [Unknown]
  - Cardiac murmur [Unknown]
  - Upper respiratory tract infection [Unknown]
  - Wheezing [Unknown]
  - Hernia congenital [Unknown]
  - Congenital knee deformity [Unknown]
  - Sepsis neonatal [Unknown]
  - Anaemia neonatal [Unknown]
  - Parasomnia [Unknown]
  - Acute sinusitis [Unknown]
  - Pyrexia [Unknown]
  - Congenital aortic valve incompetence [Unknown]
  - Premature baby [Unknown]
  - Cardiomegaly [Unknown]
  - Mental disorder [Unknown]
  - Cough [Unknown]
  - Constipation [Unknown]
